FAERS Safety Report 21823197 (Version 1)
Quarter: 2023Q1

REPORT INFORMATION
  Report Type: Spontaneous
  Country: US (occurrence: US)
  Receive Date: 20230105
  Receipt Date: 20230105
  Transmission Date: 20230418
  Serious: No
  Sender: FDA-Public Use
  Company Number: MIQ-01252022-2318(V1)

PATIENT

DRUGS (1)
  1. TRIAMTERENE AND HYDROCHLOROTHIAZIDE [Suspect]
     Active Substance: HYDROCHLOROTHIAZIDE\TRIAMTERENE
     Indication: Meniere^s disease
     Dosage: 37.5/ 25 MILLIGRAM
     Route: 048
     Dates: start: 202001

REACTIONS (2)
  - Dehydration [Unknown]
  - Electrolyte imbalance [Unknown]
